FAERS Safety Report 24580234 (Version 1)
Quarter: 2024Q4

REPORT INFORMATION
  Report Type: Spontaneous
  Country: US (occurrence: US)
  Receive Date: 20241105
  Receipt Date: 20241105
  Transmission Date: 20250115
  Serious: No
  Sender: MERCK
  Company Number: US-009507513-2410USA002434

PATIENT
  Sex: Female

DRUGS (10)
  1. WINREVAIR [Suspect]
     Active Substance: SOTATERCEPT-CSRK
     Indication: Product used for unknown indication
     Dosage: UNK
     Dates: start: 2024
  2. REMODULIN [Suspect]
     Active Substance: TREPROSTINIL
     Indication: Pulmonary arterial hypertension
     Dosage: 0.034 MICROGRAM PER KILOGRAM, CONTINUOUS
     Route: 058
     Dates: start: 2024
  3. REMODULIN [Suspect]
     Active Substance: TREPROSTINIL
     Dosage: 0.07778 MICROGRAM PER KILOGRAM, CONTINUOUS
     Route: 058
     Dates: start: 2024
  4. REMODULIN [Suspect]
     Active Substance: TREPROSTINIL
     Dosage: UNK, CONTINUOUS
     Route: 058
     Dates: start: 202401, end: 202409
  5. ORENITRAM [Suspect]
     Active Substance: TREPROSTINIL
     Indication: Pulmonary arterial hypertension
     Dosage: 9 MG (1 TAB 5MG, 1 TAB 2.5MG, 1 TAB 1MG AND 2 TABS 0.25MG), TID
     Route: 048
     Dates: start: 202409
  6. ORENITRAM [Suspect]
     Active Substance: TREPROSTINIL
     Dosage: UNK
     Route: 048
     Dates: start: 202409
  7. ORENITRAM [Suspect]
     Active Substance: TREPROSTINIL
     Dosage: UNK
     Route: 048
  8. ORENITRAM [Suspect]
     Active Substance: TREPROSTINIL
     Dosage: UNK
     Route: 048
  9. ORENITRAM [Suspect]
     Active Substance: TREPROSTINIL
     Dosage: UNK
     Route: 048
  10. ORENITRAM [Suspect]
     Active Substance: TREPROSTINIL
     Dosage: UNK
     Route: 048

REACTIONS (3)
  - Swelling face [Unknown]
  - Eye swelling [Unknown]
  - Lip swelling [Unknown]

NARRATIVE: CASE EVENT DATE: 20240101
